FAERS Safety Report 5762411-1 (Version None)
Quarter: 2008Q2

REPORT INFORMATION
  Report Type: 
  Country: None (occurrence: None)
  Receive Date: 20080609
  Receipt Date: 20080529
  Transmission Date: 20081010
  Serious: Yes (Death, Hospitalization)
  Sender: FDA-Public Use
  Company Number: US-JNJFOC-20071204678

PATIENT
  Age: 37 Year
  Sex: Male

DRUGS (7)
  1. PREZISTA [Suspect]
     Route: 048
  2. PREZISTA [Suspect]
     Indication: HIV INFECTION
     Route: 048
  3. RITONAVIR [Concomitant]
     Indication: HIV INFECTION
     Route: 065
  4. EPZICOM [Concomitant]
     Indication: HIV INFECTION
     Route: 065
  5. EMTRICITABINE [Concomitant]
  6. AZITHROMYCIN [Concomitant]
  7. ATOVAQUONE [Concomitant]

REACTIONS (4)
  - CONVULSION [None]
  - IMMUNE RECONSTITUTION SYNDROME [None]
  - MENINGITIS CRYPTOCOCCAL [None]
  - MENTAL STATUS CHANGES [None]
